FAERS Safety Report 5626210-3 (Version None)
Quarter: 2008Q1

REPORT INFORMATION
  Report Type: 
  Country: None (occurrence: None)
  Receive Date: 20080214
  Receipt Date: 20080213
  Transmission Date: 20080703
  Serious: Yes (Hospitalization)
  Sender: FDA-Public Use
  Company Number: A0709395A

PATIENT
  Sex: Female

DRUGS (11)
  1. ADVAIR DISKUS 100/50 [Suspect]
     Indication: CHRONIC OBSTRUCTIVE PULMONARY DISEASE
     Dosage: 1PUFF TWICE PER DAY
     Route: 055
     Dates: start: 20030101, end: 20080101
  2. SPIRIVA [Concomitant]
  3. DEPAKOTE [Concomitant]
  4. ZOLOFT [Concomitant]
  5. SYNTHROID [Concomitant]
  6. PROTONIX [Concomitant]
  7. LIPITOR [Concomitant]
  8. RITALIN [Concomitant]
  9. ALBUTEROL [Concomitant]
  10. OXYGEN [Concomitant]
  11. FOSAMAX [Concomitant]

REACTIONS (3)
  - BRONCHOPNEUMONIA [None]
  - LUNG DISORDER [None]
  - TREATMENT NONCOMPLIANCE [None]
